FAERS Safety Report 14939571 (Version 1)
Quarter: 2018Q2

REPORT INFORMATION
  Report Type: Spontaneous
  Country: US (occurrence: US)
  Receive Date: 20180525
  Receipt Date: 20180525
  Transmission Date: 20180711
  Serious: No
  Sender: FDA-Public Use
  Company Number: US-PFIZER INC-2018208776

PATIENT
  Age: 39 Year
  Sex: Male
  Weight: 72.57 kg

DRUGS (2)
  1. CETIRIZINE HYDROCHLORIDE. [Concomitant]
     Active Substance: CETIRIZINE HYDROCHLORIDE
     Indication: HYPERSENSITIVITY
     Dosage: 10 MG, 1X/DAY, (I TAKE IT AT NIGHT)
  2. TESTOSTERONE CIPIONATE [Suspect]
     Active Substance: TESTOSTERONE
     Dosage: 75 MG, SINGLE (75 MG, ONCE)
     Route: 030
     Dates: start: 201605

REACTIONS (7)
  - Product colour issue [Unknown]
  - Fatigue [Not Recovered/Not Resolved]
  - Feeling abnormal [Unknown]
  - Poor quality drug administered [Unknown]
  - Condition aggravated [Not Recovered/Not Resolved]
  - Limb discomfort [Unknown]
  - Malaise [Not Recovered/Not Resolved]

NARRATIVE: CASE EVENT DATE: 20180520
